FAERS Safety Report 21644971 (Version 2)
Quarter: 2022Q4

REPORT INFORMATION
  Report Type: Report from Study
  Country: US (occurrence: US)
  Receive Date: 20221125
  Receipt Date: 20221125
  Transmission Date: 20230112
  Serious: No
  Sender: FDA-Public Use
  Company Number: US-ABBVIE-4182448

PATIENT
  Sex: Male

DRUGS (1)
  1. RINVOQ [Suspect]
     Active Substance: UPADACITINIB
     Indication: Product used for unknown indication
     Route: 048

REACTIONS (4)
  - Road traffic accident [Recovering/Resolving]
  - COVID-19 [Recovering/Resolving]
  - Psoriatic arthropathy [Unknown]
  - Chemical burn [Unknown]

NARRATIVE: CASE EVENT DATE: 20220101
